FAERS Safety Report 9331079 (Version 1)
Quarter: 2013Q2

REPORT INFORMATION
  Report Type: Spontaneous
  Country: US (occurrence: US)
  Receive Date: 20130605
  Receipt Date: 20130605
  Transmission Date: 20140414
  Serious: Yes (Hospitalization)
  Sender: FDA-Public Use
  Company Number: US-BRISTOL-MYERS SQUIBB COMPANY-18970996

PATIENT
  Age: 73 Year
  Sex: Female
  Weight: 86.17 kg

DRUGS (3)
  1. COUMADIN [Suspect]
     Indication: ATRIAL FIBRILLATION
  2. DIOVAN [Concomitant]
  3. TYLENOL [Concomitant]

REACTIONS (3)
  - International normalised ratio increased [Unknown]
  - Nephrolithiasis [Unknown]
  - Haematuria [Unknown]
